FAERS Safety Report 4314170-7 (Version None)
Quarter: 2004Q1

REPORT INFORMATION
  Report Type: 
  Country: None (occurrence: None)
  Receive Date: 20040308
  Receipt Date: 20040308
  Transmission Date: 20041129
  Serious: Yes (Hospitalization)
  Sender: FDA-Public Use
  Company Number: None

PATIENT
  Age: 84 Year
  Sex: Male
  Weight: 100 kg

DRUGS (9)
  1. WARFARIN SODIUM [Suspect]
     Indication: DEEP VEIN THROMBOSIS
     Dosage: 7.5 MG DAILY ORAL
     Route: 048
  2. ALBUTEROL [Concomitant]
  3. CIMETIDINE HCL [Concomitant]
  4. DOCUSATE [Concomitant]
  5. FOSINOPRIL SODIUM [Concomitant]
  6. OXYBUTYNIN [Concomitant]
  7. PERCOCET [Concomitant]
  8. URODIOL [Concomitant]
  9. CEPHALEXIN [Concomitant]

REACTIONS (5)
  - BLOOD URINE [None]
  - GROIN PAIN [None]
  - HAEMORRHAGE URINARY TRACT [None]
  - INTERNATIONAL NORMALISED RATIO INCREASED [None]
  - PAIN IN EXTREMITY [None]
